FAERS Safety Report 9487554 (Version 5)
Quarter: 2015Q1

REPORT INFORMATION
  Report Type: Report from Study
  Country: DE (occurrence: DE)
  Receive Date: 20130829
  Receipt Date: 20150128
  Transmission Date: 20150721
  Serious: Yes (Death, Other)
  Sender: FDA-Public Use
  Company Number: DE-BRISTOL-MYERS SQUIBB COMPANY-19220219

PATIENT
  Age: 66 Year
  Sex: Male

DRUGS (1)
  1. CETUXIMAB [Suspect]
     Active Substance: CETUXIMAB
     Indication: SQUAMOUS CELL CARCINOMA OF HEAD AND NECK
     Dosage: INITIALLY 400MG/M2 FOLLOWED BY WEEKLY INFUSIONS OF 250MG/M2  RECENT DOSE OF CETUXIMAB 250MG/M2
     Route: 042
     Dates: start: 20120906, end: 20121011

REACTIONS (2)
  - Colonic pseudo-obstruction [Fatal]
  - Upper gastrointestinal haemorrhage [Recovered/Resolved]

NARRATIVE: CASE EVENT DATE: 20121019
